FAERS Safety Report 11358629 (Version 1)
Quarter: 2015Q3

REPORT INFORMATION
  Report Type: Spontaneous
  Country: US (occurrence: US)
  Receive Date: 20150803
  Receipt Date: 20150803
  Transmission Date: 20151125
  Serious: No
  Sender: FDA-Public Use
  Company Number: US-ELI_LILLY_AND_COMPANY-US201001000590

PATIENT
  Sex: Male

DRUGS (2)
  1. ZYPREXA [Suspect]
     Active Substance: OLANZAPINE
     Indication: BIPOLAR DISORDER
     Dosage: 5 MG, DAILY (1/D)
  2. ZYPREXA [Suspect]
     Active Substance: OLANZAPINE
     Dosage: 10 MG, DAILY (1/D)
     Dates: end: 20100102

REACTIONS (10)
  - Hyperaesthesia [Not Recovered/Not Resolved]
  - Sleep-related eating disorder [Not Recovered/Not Resolved]
  - Alopecia [Not Recovered/Not Resolved]
  - Glossodynia [Recovering/Resolving]
  - Eczema [Not Recovered/Not Resolved]
  - Incontinence [Recovered/Resolved]
  - Skin discolouration [Not Recovered/Not Resolved]
  - Sleep talking [Not Recovered/Not Resolved]
  - Dyskinesia [Unknown]
  - Abnormal dreams [Not Recovered/Not Resolved]
